FAERS Safety Report 5770732-1 (Version None)
Quarter: 2008Q2

REPORT INFORMATION
  Report Type: 
  Country: None (occurrence: None)
  Receive Date: 20080613
  Receipt Date: 20080512
  Transmission Date: 20081010
  Serious: No
  Sender: FDA-Public Use
  Company Number: US-ABBOTT-08P-163-0451498-00

PATIENT
  Sex: Male
  Weight: 78.996 kg

DRUGS (3)
  1. HUMIRA [Suspect]
     Indication: PSORIATIC ARTHROPATHY
     Route: 058
     Dates: start: 20080509
  2. CARVEDILOL [Concomitant]
     Indication: HYPERTENSION
     Route: 048
  3. ACETAMINOPHEN [Concomitant]
     Indication: HEADACHE
     Route: 048

REACTIONS (1)
  - FATIGUE [None]
